FAERS Safety Report 15750967 (Version 1)
Quarter: 2018Q4

REPORT INFORMATION
  Report Type: Spontaneous
  Country: US (occurrence: US)
  Receive Date: 20181206
  Receipt Date: 20181206
  Transmission Date: 20190205
  Serious: No
  Sender: FDA-Public Use
  Company Number: None

PATIENT
  Age: 1 Year
  Sex: Male
  Weight: 9.45 kg

DRUGS (4)
  1. INFANTS IBUPROFEN [Suspect]
     Active Substance: IBUPROFEN
     Indication: TEETHING
     Dosage: ?          QUANTITY:1.875 ML;?
     Route: 048
     Dates: start: 20181117, end: 20181125
  2. TYLENOL [Concomitant]
     Active Substance: ACETAMINOPHEN
  3. INFANTS IBUPROFEN [Suspect]
     Active Substance: IBUPROFEN
     Indication: PYREXIA
     Dosage: ?          QUANTITY:1.875 ML;?
     Route: 048
     Dates: start: 20181117, end: 20181125
  4. AMOXICILLIN. [Concomitant]
     Active Substance: AMOXICILLIN

REACTIONS (3)
  - Pyrexia [None]
  - Haematochezia [None]
  - Condition aggravated [None]

NARRATIVE: CASE EVENT DATE: 20181124
